FAERS Safety Report 6058034-X (Version None)
Quarter: 2009Q1

REPORT INFORMATION
  Report Type: 
  Country: None (occurrence: None)
  Receive Date: 20090129
  Receipt Date: 20090116
  Transmission Date: 20090719
  Serious: Yes (Hospitalization)
  Sender: FDA-Public Use
  Company Number: SE-ELI_LILLY_AND_COMPANY-SE200901002788

PATIENT
  Sex: Male
  Weight: 54.921 kg

DRUGS (10)
  1. BYETTA [Suspect]
     Indication: TYPE 2 DIABETES MELLITUS
     Dosage: 10 UG, UNKNOWN
     Route: 065
     Dates: start: 20080901
  2. WARFARIN SODIUM [Concomitant]
     Dosage: UNK, UNKNOWN
     Route: 065
  3. ENOXAPARIN SODIUM [Concomitant]
     Dosage: UNK, UNKNOWN
     Route: 065
  4. ANTIDEPRESSANTS [Concomitant]
     Indication: DEPRESSION
     Dosage: UNK, UNKNOWN
     Route: 065
  5. CRESTOR [Concomitant]
     Dosage: UNK, UNKNOWN
     Route: 065
  6. FURIX [Concomitant]
     Dosage: UNK, UNKNOWN
     Route: 065
  7. LEVOTHYROXINE SODIUM [Concomitant]
     Dosage: UNK, UNKNOWN
     Route: 065
  8. FENOFIBRATE [Concomitant]
     Dosage: UNK, UNKNOWN
     Route: 065
  9. SPIRONOLACTONE [Concomitant]
     Dosage: UNK, UNKNOWN
     Route: 065
  10. ZOLPIDEM TARTRATE [Concomitant]
     Dosage: UNK, UNKNOWN
     Route: 065

REACTIONS (5)
  - FATIGUE [None]
  - HAEMOGLOBIN DECREASED [None]
  - HYPOTENSION [None]
  - NAUSEA [None]
  - WEIGHT DECREASED [None]
